FAERS Safety Report 6515513-6 (Version None)
Quarter: 2009Q4

REPORT INFORMATION
  Report Type: 
  Country: None (occurrence: None)
  Receive Date: 20091223
  Receipt Date: 20091218
  Transmission Date: 20100525
  Serious: Yes (Hospitalization)
  Sender: FDA-Public Use
  Company Number: US-BRISTOL-MYERS SQUIBB COMPANY-14885107

PATIENT
  Age: 60 Year
  Sex: Female
  Weight: 56 kg

DRUGS (12)
  1. CARBOPLATIN [Suspect]
     Indication: NON-SMALL CELL LUNG CANCER
     Route: 042
     Dates: start: 20091123, end: 20091123
  2. CETUXIMAB [Suspect]
     Indication: NON-SMALL CELL LUNG CANCER
     Route: 042
     Dates: start: 20091123, end: 20091123
  3. PACLITAXEL [Suspect]
     Indication: NON-SMALL CELL LUNG CANCER
     Route: 042
     Dates: start: 20091123, end: 20091123
  4. PRILOSEC [Concomitant]
     Route: 048
  5. EVISTA [Concomitant]
     Route: 048
  6. PAXIL [Concomitant]
     Route: 048
  7. HYDROCODONE BITARTRATE [Concomitant]
     Dosage: 4-5 TIMES/DAY
     Route: 048
  8. ULTRAM [Concomitant]
  9. PROAIR HFA [Concomitant]
     Route: 055
  10. ALBUTEROL SULATE [Concomitant]
     Route: 055
  11. MELOXICAM [Concomitant]
     Route: 048
  12. XANAX [Concomitant]
     Route: 048

REACTIONS (1)
  - MYOCARDIAL INFARCTION [None]
